FAERS Safety Report 8815770 (Version 1)
Quarter: 2012Q4

REPORT INFORMATION
  Report Type: 
  Country: CA (occurrence: CA)
  Receive Date: 20120928
  Receipt Date: 20120928
  Transmission Date: 20130627
  Serious: Yes (Hospitalization, Other)
  Sender: FDA-Public Use
  Company Number: CA-B.I. PHARMACEUTICALS,INC./RIDGEFIELD-2012-EU-04908GD

PATIENT
  Age: 66 Year
  Sex: Male

DRUGS (6)
  1. PREDNISONE [Suspect]
     Indication: DRUG RASH WITH EOSINOPHILIA AND SYSTEMIC SYMPTOMS
     Dosage: 60 mg
     Route: 048
  2. RANITIDINE [Suspect]
     Indication: DRUG RASH WITH EOSINOPHILIA AND SYSTEMIC SYMPTOMS
     Dosage: 300 mg
     Route: 048
  3. HYDROCORTISONE [Suspect]
     Indication: DRUG RASH WITH EOSINOPHILIA AND SYSTEMIC SYMPTOMS
     Dosage: 120 mg
     Route: 042
  4. HYDROCORTISONE [Suspect]
     Route: 061
  5. METHYLPREDNISOLONE [Suspect]
     Indication: DRUG RASH WITH EOSINOPHILIA AND SYSTEMIC SYMPTOMS
     Dosage: 375 mg
     Route: 042
  6. CETIRIZINE [Suspect]
     Indication: DRUG RASH WITH EOSINOPHILIA AND SYSTEMIC SYMPTOMS
     Dosage: 40 mg
     Route: 042

REACTIONS (7)
  - Staphylococcal bacteraemia [Unknown]
  - Musculoskeletal pain [Unknown]
  - Osteomyelitis [Unknown]
  - Drug ineffective [Recovered/Resolved]
  - Tubulointerstitial nephritis [Unknown]
  - Renal failure acute [Unknown]
  - Delirium [Unknown]
